FAERS Safety Report 4470505-6 (Version None)
Quarter: 2004Q4

REPORT INFORMATION
  Report Type: 
  Country: None (occurrence: None)
  Receive Date: 20041001
  Receipt Date: 20040920
  Transmission Date: 20050328
  Serious: Yes (Death)
  Sender: FDA-Public Use
  Company Number: M2004-1340

PATIENT
  Age: 89 Year
  Sex: Female

DRUGS (3)
  1. RIMACTANE [Suspect]
     Indication: BONE TUBERCULOSIS
  2. PYRAZINAMIDE [Suspect]
     Indication: BONE TUBERCULOSIS
  3. ISONIAZID [Concomitant]

REACTIONS (1)
  - PNEUMONIA [None]
